FAERS Safety Report 7460865-6 (Version None)
Quarter: 2011Q2

REPORT INFORMATION
  Report Type: 
  Country: None (occurrence: None)
  Receive Date: 20110505
  Receipt Date: 20110217
  Transmission Date: 20111010
  Serious: Yes (Other)
  Sender: FDA-Public Use
  Company Number: IL-AMGEN-ISRCT2011009612

PATIENT
  Age: 64 Year
  Sex: Female

DRUGS (3)
  1. CORTICOSTEROIDS FOR SYSTEMIC USE [Concomitant]
  2. ROMIPLOSTIM [Suspect]
     Indication: THROMBOCYTOPENIC PURPURA
     Dosage: 6 A?G/KG, QWK
     Dates: start: 20100801
  3. ROMIPLOSTIM [Suspect]
     Dosage: 6 A?G/KG, QWK

REACTIONS (2)
  - SJOGREN'S SYNDROME [None]
  - SICCA SYNDROME [None]
